FAERS Safety Report 17076349 (Version 2)
Quarter: 2019Q4

REPORT INFORMATION
  Report Type: Spontaneous
  Country: AT (occurrence: AT)
  Receive Date: 20191126
  Receipt Date: 20191225
  Transmission Date: 20200122
  Serious: Yes (Other)
  Sender: FDA-Public Use
  Company Number: AT-ASTRAZENECA-2019SF65148

PATIENT
  Age: 84 Year
  Sex: Female

DRUGS (1)
  1. LYNPARZA [Suspect]
     Active Substance: OLAPARIB
     Route: 048
     Dates: start: 20190920, end: 20191121

REACTIONS (4)
  - Anaemia [Unknown]
  - Fatigue [Unknown]
  - Renal failure [Unknown]
  - Decreased appetite [Unknown]
